FAERS Safety Report 25660943 (Version 3)
Quarter: 2025Q3

REPORT INFORMATION
  Report Type: Report from Study
  Country: US (occurrence: US)
  Receive Date: 20250808
  Receipt Date: 20250925
  Transmission Date: 20251021
  Serious: Yes (Hospitalization, Other)
  Sender: ALEXION PHARMACEUTICALS
  Company Number: US-AstraZeneca-CH-00923250A

PATIENT
  Age: 22 Year
  Sex: Female

DRUGS (1)
  1. STRENSIQ [Suspect]
     Active Substance: ASFOTASE ALFA
     Indication: Hypophosphatasia
     Dosage: 160 MILLIGRAM, TIW
     Dates: start: 20250729, end: 20250731

REACTIONS (13)
  - Hypoacusis [Recovered/Resolved]
  - Blindness transient [Recovered/Resolved]
  - Rash [Not Recovered/Not Resolved]
  - Hyperhidrosis [Unknown]
  - Gait disturbance [Recovering/Resolving]
  - Bone pain [Recovered/Resolved with Sequelae]
  - Nausea [Recovered/Resolved with Sequelae]
  - Injection site rash [Unknown]
  - Pain [Unknown]
  - Swelling face [Unknown]
  - Injection site pain [Unknown]
  - Dizziness [Recovered/Resolved with Sequelae]
  - Vertigo [Recovered/Resolved with Sequelae]

NARRATIVE: CASE EVENT DATE: 20250729
